FAERS Safety Report 7608643-9 (Version None)
Quarter: 2011Q3

REPORT INFORMATION
  Report Type: 
  Country: None (occurrence: None)
  Receive Date: 20110713
  Receipt Date: 20110713
  Transmission Date: 20111222
  Serious: Yes (Other)
  Sender: FDA-Public Use
  Company Number: None

PATIENT
  Sex: Female
  Weight: 63.5036 kg

DRUGS (1)
  1. SULFAMETHOXAZOLE AND TRIMETHOPRIM [Suspect]
     Indication: CYSTITIS
     Dosage: 1 PILL TWICE DAILY PO
     Route: 048
     Dates: start: 20110703, end: 20110709

REACTIONS (10)
  - HYPERSENSITIVITY [None]
  - CHEST DISCOMFORT [None]
  - FATIGUE [None]
  - HYPERAESTHESIA [None]
  - URTICARIA [None]
  - PYREXIA [None]
  - URINE OUTPUT INCREASED [None]
  - HEADACHE [None]
  - IRRITABILITY [None]
  - DEPRESSION [None]
